FAERS Safety Report 19675184 (Version 2)
Quarter: 2021Q3

REPORT INFORMATION
  Report Type: Spontaneous
  Country: US (occurrence: US)
  Receive Date: 20210809
  Receipt Date: 20210927
  Transmission Date: 20211014
  Serious: No
  Sender: FDA-Public Use
  Company Number: US-ASTRAZENECA-2021A628808

PATIENT
  Age: 31493 Day
  Sex: Female
  Weight: 71.2 kg

DRUGS (1)
  1. SYMBICORT [Suspect]
     Active Substance: BUDESONIDE\FORMOTEROL FUMARATE DIHYDRATE
     Indication: DYSPNOEA
     Dosage: 160/4.5 MCG, ONCE DAILY
     Route: 055

REACTIONS (5)
  - Wrong technique in product usage process [Unknown]
  - Product use issue [Unknown]
  - Body height decreased [Unknown]
  - Device malfunction [Unknown]
  - Intentional product misuse [Unknown]

NARRATIVE: CASE EVENT DATE: 20210716
